FAERS Safety Report 18961130 (Version 1)
Quarter: 2021Q1

REPORT INFORMATION
  Report Type: Spontaneous
  Country: IR (occurrence: IR)
  Receive Date: 20210302
  Receipt Date: 20210302
  Transmission Date: 20210420
  Serious: Yes (Hospitalization, Other)
  Sender: FDA-Public Use
  Company Number: IR-INSUD PHARMA-2102IR00200

PATIENT

DRUGS (2)
  1. HUMAN GROWTH HORMONE, RECOMBINANT [Suspect]
     Active Substance: SOMATROPIN
     Indication: MUSCLE BUILDING THERAPY
     Dosage: 25 MG/DAY
     Route: 065
  2. TESTOSTERONE. [Suspect]
     Active Substance: TESTOSTERONE
     Indication: MUSCLE BUILDING THERAPY
     Dosage: 250 MG/WEEK
     Route: 065

REACTIONS (8)
  - Aortic dissection [Recovered/Resolved]
  - Chest pain [Recovered/Resolved]
  - Aortic valve incompetence [Recovered/Resolved]
  - Delirium [Recovered/Resolved]
  - Anxiety [Recovered/Resolved]
  - Pericardial haemorrhage [Recovered/Resolved]
  - Cold sweat [Recovered/Resolved]
  - Drug abuse [Unknown]
